FAERS Safety Report 10360049 (Version 3)
Quarter: 2014Q4

REPORT INFORMATION
  Report Type: Spontaneous
  Country: US (occurrence: US)
  Receive Date: 20140804
  Receipt Date: 20141125
  Transmission Date: 20150528
  Serious: Yes (Hospitalization)
  Sender: FDA-Public Use
  Company Number: US-BAYER-2014-113469

PATIENT
  Age: 32 Year
  Sex: Female
  Weight: 54.42 kg

DRUGS (2)
  1. ASACOL [Concomitant]
     Active Substance: MESALAMINE
     Indication: CROHN^S DISEASE
     Dosage: UNK
     Dates: start: 2001, end: 2013
  2. MIRENA [Suspect]
     Active Substance: LEVONORGESTREL
     Indication: CONTRACEPTION
     Dosage: 20 MCG/24HR, CONT
     Route: 015
     Dates: start: 201302, end: 20140128

REACTIONS (10)
  - Abdominal discomfort [None]
  - Injury [None]
  - Uterine perforation [None]
  - Abdominal pain [None]
  - Post procedural discomfort [Not Recovered/Not Resolved]
  - Procedural pain [Not Recovered/Not Resolved]
  - Pain [None]
  - Anxiety [None]
  - Off label use [None]
  - Emotional distress [None]

NARRATIVE: CASE EVENT DATE: 201306
